FAERS Safety Report 4391237-9 (Version None)
Quarter: 2004Q2

REPORT INFORMATION
  Report Type: 
  Country: None (occurrence: None)
  Receive Date: 20040621
  Receipt Date: 20040303
  Transmission Date: 20050107
  Serious: Yes (Other)
  Sender: FDA-Public Use
  Company Number: USA-2002-0002805

PATIENT
  Age: 41 Year
  Sex: Male
  Weight: 59 kg

DRUGS (10)
  1. OXYCONTIN [Suspect]
     Indication: PAIN
     Dosage: DAILY,
     Dates: start: 19970101
  2. SKELAXIN [Concomitant]
  3. NEURONTIN [Concomitant]
  4. CELEBREX [Concomitant]
  5. PEPCID [Concomitant]
  6. PAXIL [Concomitant]
  7. WELLBUTRIN SR [Concomitant]
  8. ZOLOFT [Concomitant]
  9. OXYCODONE HCL [Concomitant]
  10. COCAINE [Concomitant]

REACTIONS (22)
  - ACCIDENT [None]
  - ANXIETY [None]
  - DRUG ABUSER [None]
  - DRUG DEPENDENCE [None]
  - DRUG INEFFECTIVE [None]
  - DRUG WITHDRAWAL SYNDROME [None]
  - DYSPHAGIA [None]
  - EATING DISORDER [None]
  - EMOTIONAL DISTRESS [None]
  - GROIN PAIN [None]
  - HEART RATE INCREASED [None]
  - INSOMNIA [None]
  - INTERVERTEBRAL DISC DISORDER [None]
  - LUMBAR RADICULOPATHY [None]
  - NAUSEA [None]
  - OROPHARYNGEAL SWELLING [None]
  - PAIN [None]
  - PHARYNGEAL ERYTHEMA [None]
  - PYREXIA [None]
  - SPONDYLOSIS [None]
  - VIRAL INFECTION [None]
  - WEIGHT DECREASED [None]
